FAERS Safety Report 8804554 (Version 2)
Quarter: 2013Q1

REPORT INFORMATION
  Report Type: Report from Study
  Country: AR (occurrence: AR)
  Receive Date: 20120924
  Receipt Date: 20130211
  Transmission Date: 20140127
  Serious: Yes (Life-Threatening, Other)
  Sender: FDA-Public Use
  Company Number: AR-ASTRAZENECA-2012SE73294

PATIENT
  Age: 26229 Day
  Sex: Female

DRUGS (5)
  1. AZD6140 [Suspect]
     Indication: CORONARY ARTERY DISEASE
     Route: 048
     Dates: start: 20111031, end: 20120603
  2. AZD6140 [Suspect]
     Indication: CORONARY ARTERY DISEASE
     Route: 048
     Dates: start: 20120611, end: 20120821
  3. ROSUVASTATIN [Concomitant]
     Indication: HYPERCHOLESTEROLAEMIA
     Route: 048
     Dates: start: 20100630
  4. ENALAPRIL [Concomitant]
     Indication: HYPERTENSION
     Route: 048
     Dates: start: 20100630
  5. ASA [Concomitant]
     Route: 048
     Dates: start: 20100630

REACTIONS (2)
  - Ventricular tachycardia [Recovered/Resolved]
  - Atrial fibrillation [Recovered/Resolved]
